FAERS Safety Report 13703130 (Version 2)
Quarter: 2017Q3

REPORT INFORMATION
  Report Type: Report from Study
  Country: US (occurrence: US)
  Receive Date: 20170629
  Receipt Date: 20170703
  Transmission Date: 20171127
  Serious: Yes (Hospitalization, Other)
  Sender: FDA-Public Use
  Company Number: US-SHIRE-US201713708

PATIENT
  Sex: Male

DRUGS (1)
  1. GATTEX [Suspect]
     Active Substance: TEDUGLUTIDE\WATER
     Indication: SHORT-BOWEL SYNDROME
     Dosage: 0.20 ML, 1X/DAY:QD
     Route: 058
     Dates: end: 20170606

REACTIONS (3)
  - Gastrointestinal stoma complication [Unknown]
  - Cholecystitis [Unknown]
  - Adverse event [Unknown]
